FAERS Safety Report 7069478-1 (Version None)
Quarter: 2010Q4

REPORT INFORMATION
  Report Type: 
  Country: None (occurrence: None)
  Receive Date: 20101028
  Receipt Date: 20091023
  Transmission Date: 20110411
  Serious: No
  Sender: FDA-Public Use
  Company Number: US-WYE-H11874709

PATIENT
  Age: 55 Year
  Sex: Female
  Weight: 68.1 kg

DRUGS (3)
  1. ADVIL COLD AND SINUS [Suspect]
     Indication: HEADACHE
     Route: 048
     Dates: start: 20091022, end: 20091022
  2. LIPITOR [Concomitant]
  3. NEXIUM [Concomitant]

REACTIONS (3)
  - CAPSULE ISSUE [None]
  - PARAESTHESIA ORAL [None]
  - THROAT IRRITATION [None]
